FAERS Safety Report 19747967 (Version 1)
Quarter: 2021Q3

REPORT INFORMATION
  Report Type: Other
  Country: NL (occurrence: NL)
  Receive Date: 20210826
  Receipt Date: 20210826
  Transmission Date: 20211014
  Serious: Yes (Other)
  Sender: FDA-Public Use
  Company Number: NL-ROCHE-2893682

PATIENT

DRUGS (1)
  1. CAPECITABINE. [Suspect]
     Active Substance: CAPECITABINE
     Indication: SQUAMOUS CELL CARCINOMA
     Route: 065

REACTIONS (6)
  - Malaise [Unknown]
  - Dehydration [Unknown]
  - Arteriospasm coronary [Unknown]
  - Toxicity to various agents [Unknown]
  - Pain [Unknown]
  - Diarrhoea [Unknown]
